FAERS Safety Report 6705814-0 (Version None)
Quarter: 2010Q2

REPORT INFORMATION
  Report Type: 
  Country: None (occurrence: None)
  Receive Date: 20100503
  Receipt Date: 20090514
  Transmission Date: 20101027
  Serious: Yes (Other)
  Sender: FDA-Public Use
  Company Number: US-BAYER-200921061NA

PATIENT
  Age: 52 Year
  Sex: Female

DRUGS (3)
  1. CLIMARA [Suspect]
     Indication: HORMONE REPLACEMENT THERAPY
     Dosage: TOTAL DAILY DOSE: 0.05 MG
     Route: 061
     Dates: start: 20081001
  2. VITAMIN C [Concomitant]
  3. VITAMIN D [Concomitant]

REACTIONS (8)
  - ABDOMINAL DISTENSION [None]
  - AMNESIA [None]
  - BREAST DISCOMFORT [None]
  - FATIGUE [None]
  - FOOD CRAVING [None]
  - HEADACHE [None]
  - HOT FLUSH [None]
  - WEIGHT INCREASED [None]
